FAERS Safety Report 5060774-6 (Version None)
Quarter: 2006Q3

REPORT INFORMATION
  Report Type: 
  Country: None (occurrence: None)
  Receive Date: 20060719
  Receipt Date: 20060719
  Transmission Date: 20061208
  Serious: Yes (Hospitalization)
  Sender: FDA-Public Use
  Company Number: None

PATIENT
  Sex: Male
  Weight: 180 kg

DRUGS (7)
  1. I-131 [Suspect]
     Indication: GLIOBLASTOMA
     Dosage: 66.8 MCI OF TC-99MDTPA
     Dates: start: 20060628
  2. DECADRON [Concomitant]
  3. DILANTIN [Concomitant]
  4. PROTONIX [Concomitant]
  5. ACETAMINOPHEN [Concomitant]
  6. COLACE [Concomitant]
  7. OXYCODONE HCL [Concomitant]

REACTIONS (3)
  - CONVULSION [None]
  - DRUG LEVEL BELOW THERAPEUTIC [None]
  - HEMIPARESIS [None]
